FAERS Safety Report 15830776 (Version 3)
Quarter: 2019Q3

REPORT INFORMATION
  Report Type: Report from Study
  Country: CA (occurrence: CA)
  Receive Date: 20190116
  Receipt Date: 20190809
  Transmission Date: 20191004
  Serious: Yes (Hospitalization)
  Sender: FDA-Public Use
  Company Number: CA-BRISTOL-MYERS SQUIBB COMPANY-BMS-2019-001009

PATIENT
  Age: 75 Year
  Sex: Female

DRUGS (1)
  1. ABATACEPT [Suspect]
     Active Substance: ABATACEPT
     Indication: PRODUCT USED FOR UNKNOWN INDICATION
     Dosage: UNK
     Route: 042
     Dates: start: 20180604

REACTIONS (8)
  - Rheumatoid arthritis [Not Recovered/Not Resolved]
  - Performance status decreased [Unknown]
  - Fatigue [Unknown]
  - Restlessness [Unknown]
  - Hospitalisation [Unknown]
  - Balance disorder [Recovering/Resolving]
  - Fall [Recovering/Resolving]
  - Decreased appetite [Unknown]

NARRATIVE: CASE EVENT DATE: 20181223
